FAERS Safety Report 10271748 (Version 1)
Quarter: 2014Q3

REPORT INFORMATION
  Report Type: Spontaneous
  Country: US (occurrence: US)
  Receive Date: 20140701
  Receipt Date: 20140701
  Transmission Date: 20150326
  Serious: No
  Sender: FDA-Public Use
  Company Number: US-SA-CERZ-1002835

PATIENT
  Age: 17 Year
  Sex: Female
  Weight: 50.5 kg

DRUGS (1)
  1. CEREZYME [Suspect]
     Active Substance: IMIGLUCERASE
     Indication: GAUCHER^S DISEASE
     Dosage: DOSE : 2400 UNITS Q2W OR 47.5 U/KG, Q2W DOSE:47.5 UNIT(S)/KILOGRAM BODYWEIGHT
     Route: 042
     Dates: start: 200003

REACTIONS (1)
  - Exposure during pregnancy [Unknown]

NARRATIVE: CASE EVENT DATE: 201301
